FAERS Safety Report 9723000 (Version 1)
Quarter: 2013Q4

REPORT INFORMATION
  Report Type: Spontaneous
  Country: FR (occurrence: FR)
  Receive Date: 20131202
  Receipt Date: 20131202
  Transmission Date: 20140711
  Serious: Yes (Life-Threatening, Hospitalization)
  Sender: FDA-Public Use
  Company Number: FR-SA-2013SA121604

PATIENT
  Age: 63 Year
  Sex: Male

DRUGS (6)
  1. RIFADINE [Suspect]
     Indication: MENINGITIS TUBERCULOUS
     Route: 042
     Dates: start: 20131024, end: 20131102
  2. PIRILENE [Suspect]
     Indication: MENINGITIS TUBERCULOUS
     Route: 048
     Dates: start: 20131024, end: 20131102
  3. RIMIFON [Suspect]
     Indication: MENINGITIS TUBERCULOUS
     Route: 042
     Dates: start: 20131024, end: 20131102
  4. MYAMBUTOL [Suspect]
     Indication: MENINGITIS TUBERCULOUS
     Route: 042
     Dates: start: 20131024, end: 20131102
  5. FLUCONAZOLE [Suspect]
     Indication: PRODUCT USED FOR UNKNOWN INDICATION
     Route: 042
     Dates: start: 20131026, end: 20131102
  6. VALACICLOVIR [Concomitant]
     Indication: UVEITIS
     Route: 048
     Dates: start: 20131026, end: 20131030

REACTIONS (2)
  - Hepatitis fulminant [Recovered/Resolved]
  - Jaundice [Recovered/Resolved]
